FAERS Safety Report 4432662-7 (Version None)
Quarter: 2004Q3

REPORT INFORMATION
  Report Type: 
  Country: None (occurrence: None)
  Receive Date: 20040820
  Receipt Date: 20040730
  Transmission Date: 20050211
  Serious: Yes (Other)
  Sender: FDA-Public Use
  Company Number: USA040772578

PATIENT
  Age: 69 Year
  Sex: Male
  Weight: 143 kg

DRUGS (12)
  1. XIGRIS [Suspect]
     Indication: SEPSIS
     Dosage: 24 UG/KG/HR
     Dates: start: 20040712, end: 20040716
  2. CELLCEPT [Concomitant]
  3. RAPAMUNE [Concomitant]
  4. PREDNISONE [Concomitant]
  5. VASOPRESSIN INJECTION [Concomitant]
  6. PHENYLEPHRINE [Concomitant]
  7. NOREPINEPHRINE BITARTRATE [Concomitant]
  8. ATIVAN [Concomitant]
  9. FENTANYL [Concomitant]
  10. CIPRO [Concomitant]
  11. DOXYCYCLINE [Concomitant]
  12. PREVACID [Concomitant]

REACTIONS (7)
  - ACTIVATED PARTIAL THROMBOPLASTIN TIME PROLONGED [None]
  - CONDITION AGGRAVATED [None]
  - HAEMATOCRIT DECREASED [None]
  - HAEMOGLOBIN DECREASED [None]
  - PLATELET COUNT DECREASED [None]
  - PROTHROMBIN TIME SHORTENED [None]
  - RENAL FAILURE [None]
